FAERS Safety Report 12499114 (Version 1)
Quarter: 2016Q2

REPORT INFORMATION
  Report Type: Spontaneous
  Country: US (occurrence: None)
  Receive Date: 20160624
  Receipt Date: 20160624
  Transmission Date: 20160815
  Serious: Yes (Hospitalization)
  Sender: FDA-Public Use
  Company Number: None

PATIENT
  Age: 86 Year
  Sex: Male
  Weight: 81.65 kg

DRUGS (6)
  1. TRAMADOL/ACETOMINOPHEN, 37.5 MG [Suspect]
     Active Substance: ACETAMINOPHEN\TRAMADOL HYDROCHLORIDE
     Indication: BACK INJURY
     Route: 048
  2. STATIN DRUGS [Concomitant]
     Active Substance: UNSPECIFIED INGREDIENT
  3. FUROSIMIDE [Concomitant]
     Active Substance: FUROSEMIDE
  4. ACE INHIBITOR [Concomitant]
     Active Substance: UNSPECIFIED INGREDIENT
  5. TRAMADOL/ACETOMINOPHEN, 37.5 MG [Suspect]
     Active Substance: ACETAMINOPHEN\TRAMADOL HYDROCHLORIDE
     Indication: FALL
     Route: 048
  6. METFORMIN [Concomitant]
     Active Substance: METFORMIN HYDROCHLORIDE

REACTIONS (3)
  - Delirium [None]
  - Sedation [None]
  - Hallucination [None]

NARRATIVE: CASE EVENT DATE: 20160621
